FAERS Safety Report 8402917 (Version 2)
Quarter: 2013Q4

REPORT INFORMATION
  Report Type: Spontaneous
  Country: US (occurrence: US)
  Receive Date: 20120213
  Receipt Date: 20131231
  Transmission Date: 20140711
  Serious: Yes (Other)
  Sender: FDA-Public Use
  Company Number: US-BAYER-2012-013729

PATIENT
  Age: 23 Year
  Sex: Female

DRUGS (4)
  1. YASMIN [Suspect]
     Indication: PRODUCT USED FOR UNKNOWN INDICATION
     Dosage: UNK
     Dates: start: 200210, end: 200404
  2. AMOXICILLIN [Concomitant]
     Dosage: 500 MG, TID
     Route: 048
  3. ZITHROMAX [Concomitant]
     Dosage: 250 MG, UNK
  4. DICYCLOMINE [Concomitant]
     Dosage: 20 MG, UNK
     Route: 048

REACTIONS (9)
  - Cholecystitis chronic [None]
  - Gallbladder disorder [None]
  - Injury [None]
  - Pain [None]
  - Anxiety [None]
  - Gastrointestinal disorder [None]
  - Post cholecystectomy syndrome [None]
  - Psychological trauma [None]
  - Gallbladder pain [None]
